FAERS Safety Report 6250752-3 (Version None)
Quarter: 2009Q2

REPORT INFORMATION
  Report Type: 
  Country: None (occurrence: None)
  Receive Date: 20090630
  Receipt Date: 20081003
  Transmission Date: 20091009
  Serious: No
  Sender: FDA-Public Use
  Company Number: US-ABBOTT-08P-163-0479895-00

PATIENT
  Sex: Female
  Weight: 72.64 kg

DRUGS (5)
  1. ZEMPLAR [Suspect]
     Indication: HYPERPARATHYROIDISM
     Route: 048
     Dates: start: 20080801
  2. AMIODARONE [Concomitant]
     Indication: ATRIAL FIBRILLATION
     Route: 048
  3. HYDROCHLOROTHIAZIDE [Concomitant]
     Indication: DRUG USE FOR UNKNOWN INDICATION
     Route: 048
  4. CLOTRIMAZOLE [Concomitant]
     Indication: DRUG USE FOR UNKNOWN INDICATION
     Dosage: 5/20 MG
     Route: 048
  5. ACETYLSALICYLIC ACID [Concomitant]
     Indication: CARDIAC DISORDER
     Route: 048

REACTIONS (1)
  - PRURITUS [None]
